FAERS Safety Report 9450811 (Version 1)
Quarter: 2013Q3

REPORT INFORMATION
  Report Type: Spontaneous
  Country: AU (occurrence: AU)
  Receive Date: 20130809
  Receipt Date: 20130809
  Transmission Date: 20140515
  Serious: Yes (Hospitalization)
  Sender: FDA-Public Use
  Company Number: AU-BAXTER-2013BAX030599

PATIENT
  Age: 40 Year
  Sex: Male

DRUGS (3)
  1. DIANEAL PD-4 PERITONEAL DIALYSIS SOLUTION WITH 2.5% W_V GLUCOSE LOW CA [Suspect]
     Indication: PERITONEAL DIALYSIS
     Route: 033
     Dates: start: 20130729, end: 20130729
  2. DIANEAL LOW CALCIUM WITH 4.25 PERCENT W/V GLUCOSE PERITONEAL DIALYSIS [Suspect]
     Indication: PERITONEAL DIALYSIS
     Route: 033
     Dates: start: 20130729, end: 20130729
  3. DIANEAL PD-4 PERITONEAL DIALYSIS SOLUTION WITH 4.25% W_V GLUCOSE LOW C [Suspect]
     Indication: PERITONEAL DIALYSIS
     Route: 033
     Dates: start: 20130729, end: 20130729

REACTIONS (1)
  - Local reaction [Unknown]
